FAERS Safety Report 12920224 (Version 1)
Quarter: 2016Q4

REPORT INFORMATION
  Report Type: Spontaneous
  Country: US (occurrence: US)
  Receive Date: 20161105
  Receipt Date: 20161105
  Transmission Date: 20170207
  Serious: Yes (Hospitalization, Disabling, Other)
  Sender: FDA-Public Use
  Company Number: None

PATIENT
  Age: 64 Year
  Sex: Female
  Weight: 54.9 kg

DRUGS (21)
  1. BACLOFEN. [Concomitant]
     Active Substance: BACLOFEN
  2. LEVEMIR [Concomitant]
     Active Substance: INSULIN DETEMIR
  3. SUMATRIPTAN. [Concomitant]
     Active Substance: SUMATRIPTAN
  4. GABAPENTIN. [Suspect]
     Active Substance: GABAPENTIN
     Indication: NEUROPATHY PERIPHERAL
     Dosage: ?          QUANTITY:2 TABLET(S);?
     Route: 048
     Dates: start: 20030311, end: 20161105
  5. LIDOCAINE. [Concomitant]
     Active Substance: LIDOCAINE
  6. HALCION [Concomitant]
     Active Substance: TRIAZOLAM
  7. AMLODIPINE [Concomitant]
     Active Substance: AMLODIPINE BESYLATE
  8. CLONIDINE. [Concomitant]
     Active Substance: CLONIDINE
  9. COZAAR [Concomitant]
     Active Substance: LOSARTAN POTASSIUM
  10. ZOFRAN [Concomitant]
     Active Substance: ONDANSETRON HYDROCHLORIDE
  11. NEURONTIN [Concomitant]
     Active Substance: GABAPENTIN
  12. PRIMIDONE. [Concomitant]
     Active Substance: PRIMIDONE
  13. TRILEPTAL [Concomitant]
     Active Substance: OXCARBAZEPINE
  14. VALIUM [Concomitant]
     Active Substance: DIAZEPAM
  15. NOVOLOG [Concomitant]
     Active Substance: INSULIN ASPART
  16. EXCEDRIN [Concomitant]
     Active Substance: ACETAMINOPHEN\ASPIRIN\CAFFEINE
  17. BENADRYL [Concomitant]
     Active Substance: DIPHENHYDRAMINE HYDROCHLORIDE
  18. GABAPENTIN. [Suspect]
     Active Substance: GABAPENTIN
     Indication: BIPOLAR I DISORDER
     Dosage: ?          QUANTITY:2 TABLET(S);?
     Route: 048
     Dates: start: 20030311, end: 20161105
  19. HYDROCODONE [Concomitant]
     Active Substance: HYDROCODONE
  20. PRAVOSIN [Concomitant]
  21. NITROBID /00003201/ [Concomitant]
     Active Substance: NITROGLYCERIN

REACTIONS (12)
  - Hypoaesthesia [None]
  - Dysphagia [None]
  - Paraesthesia oral [None]
  - Dyskinesia [None]
  - Personality change [None]
  - Pyrexia [None]
  - Tremor [None]
  - Paraesthesia [None]
  - Disturbance in attention [None]
  - Hypoaesthesia oral [None]
  - Insomnia [None]
  - Muscle twitching [None]

NARRATIVE: CASE EVENT DATE: 20161027
